FAERS Safety Report 15310648 (Version 1)
Quarter: 2018Q3

REPORT INFORMATION
  Report Type: Spontaneous
  Country: US (occurrence: US)
  Receive Date: 20180813
  Receipt Date: 20180813
  Transmission Date: 20181010
  Serious: No
  Sender: FDA-Public Use
  Company Number: None

PATIENT
  Age: 73 Year
  Sex: Male
  Weight: 76.95 kg

DRUGS (1)
  1. METHYLPREDNISOLONE. [Suspect]
     Active Substance: METHYLPREDNISOLONE
     Indication: ARTHROPATHY
     Dosage: ?          QUANTITY:21 TABLET(S);OTHER FREQUENCY:VARIES BY DAY;?
     Route: 048

REACTIONS (3)
  - Product use complaint [None]
  - Product label confusion [None]
  - Physical product label issue [None]

NARRATIVE: CASE EVENT DATE: 20180809
